FAERS Safety Report 8409160-9 (Version None)
Quarter: 2012Q2

REPORT INFORMATION
  Report Type: 
  Country: None (occurrence: None)
  Receive Date: 20120604
  Receipt Date: 20120531
  Transmission Date: 20120825
  Serious: Yes (Other)
  Sender: FDA-Public Use
  Company Number: US-BAYER-2012-054579

PATIENT
  Age: 23 Year
  Sex: Female

DRUGS (2)
  1. MIRENA [Suspect]
     Dosage: 20 ?G/DAY
     Dates: start: 20120507
  2. NITROFURANTOIN [Concomitant]
     Indication: CYSTITIS
     Dosage: 100 MG, UNK

REACTIONS (2)
  - ADNEXA UTERI PAIN [None]
  - CYSTITIS [None]
